FAERS Safety Report 6018047-0 (Version None)
Quarter: 2008Q4

REPORT INFORMATION
  Report Type: 
  Country: None (occurrence: None)
  Receive Date: 20081223
  Receipt Date: 20081215
  Transmission Date: 20090506
  Serious: Yes (Other)
  Sender: FDA-Public Use
  Company Number: ES-ABBOTT-08P-144-0493465-00

PATIENT
  Age: 53 Year
  Sex: Female

DRUGS (4)
  1. NORVIR [Suspect]
     Indication: ACUTE HIV INFECTION
     Route: 048
     Dates: start: 20080324, end: 20080528
  2. NORVIR [Suspect]
     Route: 048
     Dates: start: 20080324, end: 20080528
  3. REYATAZ [Suspect]
     Indication: ACUTE HIV INFECTION
     Route: 048
     Dates: start: 20080324, end: 20080528
  4. TRUVADA [Concomitant]
     Indication: DRUG USE FOR UNKNOWN INDICATION
     Dates: start: 20080328

REACTIONS (1)
  - CHOLESTASIS [None]
